FAERS Safety Report 23658636 (Version 1)
Quarter: 2024Q1

REPORT INFORMATION
  Report Type: Spontaneous
  Country: IT (occurrence: IT)
  Receive Date: 20240321
  Receipt Date: 20240321
  Transmission Date: 20240409
  Serious: Yes (Death, Other)
  Sender: FDA-Public Use
  Company Number: IT-TAKEDA-2024TUS026259

PATIENT
  Age: 41 Year
  Sex: Female

DRUGS (1)
  1. FRUQUINTINIB [Suspect]
     Active Substance: FRUQUINTINIB
     Indication: Colorectal cancer metastatic
     Dosage: UNK
     Route: 065
     Dates: start: 20210119, end: 20210903

REACTIONS (3)
  - Death [Fatal]
  - Hypothyroidism [Unknown]
  - Hypertension [Unknown]

NARRATIVE: CASE EVENT DATE: 20211019
